FAERS Safety Report 5832792-9 (Version None)
Quarter: 2008Q3

REPORT INFORMATION
  Report Type: 
  Country: None (occurrence: None)
  Receive Date: 20080804
  Receipt Date: 20080722
  Transmission Date: 20090109
  Serious: Yes (Other)
  Sender: FDA-Public Use
  Company Number: DE-ROCHE-568642

PATIENT
  Sex: Male

DRUGS (3)
  1. XELODA [Suspect]
     Indication: COLORECTAL CANCER
     Route: 048
  2. OXALIPLATIN [Suspect]
     Indication: COLORECTAL CANCER
     Route: 042
  3. FLUOROURACIL [Suspect]
     Indication: DRUG USE FOR UNKNOWN INDICATION
     Route: 042

REACTIONS (2)
  - HICCUPS [None]
  - PALMAR-PLANTAR ERYTHRODYSAESTHESIA SYNDROME [None]
